FAERS Safety Report 5632867-3 (Version None)
Quarter: 2008Q1

REPORT INFORMATION
  Report Type: 
  Country: None (occurrence: None)
  Receive Date: 20080221
  Receipt Date: 20080208
  Transmission Date: 20080703
  Serious: Yes (Other)
  Sender: FDA-Public Use
  Company Number: NO-JNJFOC-20080202241

PATIENT
  Sex: Female

DRUGS (5)
  1. REMICADE [Suspect]
     Route: 042
  2. REMICADE [Suspect]
     Route: 042
  3. REMICADE [Suspect]
     Indication: CROHN'S DISEASE
     Route: 042
  4. SALAZOPYRIN [Concomitant]
     Indication: CROHN'S DISEASE
     Route: 048
  5. IMUREL [Concomitant]
     Indication: CROHN'S DISEASE

REACTIONS (2)
  - DERMATITIS PSORIASIFORM [None]
  - PUSTULAR PSORIASIS [None]
